FAERS Safety Report 6731152-6 (Version None)
Quarter: 2010Q2

REPORT INFORMATION
  Report Type: 
  Country: None (occurrence: None)
  Receive Date: 20100518
  Receipt Date: 20100505
  Transmission Date: 20101027
  Serious: Yes (Other)
  Sender: FDA-Public Use
  Company Number: US-ELI_LILLY_AND_COMPANY-US201005002738

PATIENT
  Sex: Female

DRUGS (3)
  1. CYMBALTA [Suspect]
     Dosage: 120 MG, UNK
     Dates: start: 20070601, end: 20090601
  2. PROVIGIL [Concomitant]
     Dosage: UNK, UNK
     Dates: start: 20070101, end: 20090601
  3. WELLBUTRIN [Concomitant]
     Dosage: UNK, UNK
     Dates: start: 20070101, end: 20090601

REACTIONS (3)
  - DRUG WITHDRAWAL SYNDROME [None]
  - INFLUENZA LIKE ILLNESS [None]
  - WEIGHT INCREASED [None]
